FAERS Safety Report 9092247 (Version 1)
Quarter: 2013Q1

REPORT INFORMATION
  Report Type: Spontaneous
  Country: US (occurrence: US)
  Receive Date: 20130218
  Receipt Date: 20130218
  Transmission Date: 20140127
  Serious: No
  Sender: FDA-Public Use
  Company Number: US-ABBOTT-12P-163-1005255-00

PATIENT
  Sex: Female
  Weight: 99.88 kg

DRUGS (2)
  1. SIMCOR 500/40 [Suspect]
     Indication: BLOOD CHOLESTEROL INCREASED
     Dosage: 500MG/40 MG
     Dates: start: 2012
  2. BABY ASPIRIN [Concomitant]
     Indication: DRUG THERAPY
     Dosage: 30 MINUTES BEFORE SIMCOR

REACTIONS (2)
  - Skin burning sensation [Not Recovered/Not Resolved]
  - Erythema [Not Recovered/Not Resolved]
